FAERS Safety Report 5694931-2 (Version None)
Quarter: 2008Q2

REPORT INFORMATION
  Report Type: 
  Country: None (occurrence: None)
  Receive Date: 20080404
  Receipt Date: 20080324
  Transmission Date: 20081010
  Serious: Yes (Death, Other)
  Sender: FDA-Public Use
  Company Number: IT-ROCHE-521101

PATIENT
  Sex: Male

DRUGS (5)
  1. CAPECITABINE [Suspect]
     Dosage: FROM DAY 2 TO DAY 15
     Route: 048
  2. EPIRUBICIN [Suspect]
     Dosage: ON DAY 1, 50MG/M2 IN 100ML OF NORMAL SALINE INFUSED AS A BOLUS INTO THE HEPATIC ARTERY BY AN ANGIOG+
     Route: 013
  3. CISPLATIN [Suspect]
     Dosage: ON DAY 1, 60MG/M2 IN 120ML OF NORMAL SALINE INFUSED AS A BOLUS INTO THE HEPATIC ARTERY BY AN ANGIOG+
     Route: 013
  4. ANTIEMETIC [Concomitant]
     Indication: PROPHYLAXIS OF NAUSEA AND VOMITING
     Dosage: REPORTED AS '5-HYDROXYTRYPTAMINE TYPE 3 RECEPTOR ANTAGONIST'
  5. DEXAMETHASONE TAB [Concomitant]
     Indication: PROPHYLAXIS OF NAUSEA AND VOMITING

REACTIONS (5)
  - DIARRHOEA [None]
  - GASTROINTESTINAL TOXICITY [None]
  - NEUTROPENIA [None]
  - THROMBOCYTOPENIA [None]
  - VOMITING [None]
